FAERS Safety Report 6896436-X (Version None)
Quarter: 2010Q3

REPORT INFORMATION
  Report Type: 
  Country: None (occurrence: None)
  Receive Date: 20100727
  Receipt Date: 20100714
  Transmission Date: 20110219
  Serious: Yes (Other)
  Sender: FDA-Public Use
  Company Number: JP-MERCK-1007USA01942

PATIENT
  Age: 36 Year
  Sex: Female

DRUGS (4)
  1. PEPCID [Suspect]
     Route: 048
     Dates: start: 20100410
  2. CELCOX [Suspect]
     Route: 048
     Dates: start: 20100401, end: 20100710
  3. NORVASC [Suspect]
     Route: 048
  4. KEISHI-KA-SHAKUYAKU-DAIO-TO [Suspect]
     Route: 048
     Dates: start: 20100510

REACTIONS (1)
  - VENOUS THROMBOSIS LIMB [None]
